FAERS Safety Report 21468677 (Version 2)
Quarter: 2023Q4

REPORT INFORMATION
  Report Type: Report from Study
  Country: FR (occurrence: FR)
  Receive Date: 20221018
  Receipt Date: 20231101
  Transmission Date: 20240110
  Serious: Yes (Other)
  Sender: FDA-Public Use
  Company Number: FR-CELLTRION HEALTHCARE HUNGARY KFT-2019FR023551

PATIENT

DRUGS (11)
  1. REMICADE [Suspect]
     Active Substance: INFLIXIMAB
     Indication: Crohn^s disease
     Route: 042
  2. REMICADE [Suspect]
     Active Substance: INFLIXIMAB
     Dosage: 5 MG/KG AT WEEK 0, WEEK 4 AND WEEK 8 (INDUCTION REGIMEN)
     Route: 065
  3. REMICADE [Suspect]
     Active Substance: INFLIXIMAB
     Dosage: 5 MG/KG AT WEEK 4 (INDUCTION REGIMEN
     Route: 065
  4. REMICADE [Suspect]
     Active Substance: INFLIXIMAB
     Dosage: UNKNOWN (AT WEEK 0, WEEK 4 AND WEEK 8)/PHARMACEUTICAL DOSE FORM TERMID: UNKNOWN (OTHER/UNSPECIFIED)
     Route: 065
  5. REMICADE [Suspect]
     Active Substance: INFLIXIMAB
     Dosage: UNKNOWN (AT WEEK 0, WEEK 4 AND WEEK 8)/PHARMACEUTICAL DOSE FORM TERMID: UNKNOWN (OTHER/UNSPECIFIED)
     Route: 065
  6. REMICADE [Suspect]
     Active Substance: INFLIXIMAB
     Dosage: 8 WEEK, UNKNOWN (MAINTENANCE TREATMENT)/PHARMACEUTICAL DOSE FORM TERMID: UNKNOWN (OTHER/UNSPECIFIED)
     Route: 065
  7. REMICADE [Suspect]
     Active Substance: INFLIXIMAB
     Dosage: 5 MG/KG AT WEEK 8 (INDUCTION REGIMEN)
     Route: 065
  8. REMICADE [Suspect]
     Active Substance: INFLIXIMAB
     Dosage: UNKNOWN, INITIAL
     Route: 065
  9. REMICADE [Suspect]
     Active Substance: INFLIXIMAB
     Dosage: 5 MG/KG AT WEEK 0 (INDUCTION REGIMEN)
     Route: 065
  10. HYDROCORTISONE [Concomitant]
     Active Substance: HYDROCORTISONE
     Indication: Premedication
  11. DEXCHLORPHENIRAMINE [Concomitant]
     Active Substance: DEXCHLORPHENIRAMINE
     Indication: Premedication

REACTIONS (21)
  - Infusion related reaction [Unknown]
  - Infection [Unknown]
  - Drug intolerance [Unknown]
  - Hepatobiliary disease [Unknown]
  - Gastrointestinal disorder [Unknown]
  - Nervous system disorder [Unknown]
  - Cardiac disorder [Unknown]
  - Immune system disorder [Unknown]
  - Mediastinal disorder [Unknown]
  - Connective tissue disorder [Unknown]
  - Renal disorder [Unknown]
  - Adverse event [Unknown]
  - Skin disorder [Unknown]
  - Musculoskeletal disorder [Unknown]
  - Maternal exposure before pregnancy [Unknown]
  - Drug specific antibody present [Unknown]
  - Drug ineffective [Unknown]
  - Off label use [Unknown]
  - Respiratory disorder [Unknown]
  - Infestation [Unknown]
  - Loss of therapeutic response [Unknown]
